FAERS Safety Report 9310171 (Version 1)
Quarter: 2013Q2

REPORT INFORMATION
  Report Type: Spontaneous
  Country: US (occurrence: US)
  Receive Date: 20130527
  Receipt Date: 20130527
  Transmission Date: 20140414
  Serious: No
  Sender: FDA-Public Use
  Company Number: US-009507513-1305USA014025

PATIENT
  Sex: Female

DRUGS (3)
  1. SAPHRIS [Suspect]
     Indication: BIPOLAR DISORDER
     Dosage: 5 MG, BID
     Route: 060
     Dates: start: 20130508
  2. SAPHRIS [Suspect]
     Dosage: 5 MG, QD
     Route: 060
     Dates: start: 201305
  3. DILANTIN [Concomitant]

REACTIONS (2)
  - Oesophageal achalasia [Unknown]
  - Inappropriate schedule of drug administration [Unknown]
